FAERS Safety Report 9664732 (Version 1)
Quarter: 2013Q4

REPORT INFORMATION
  Report Type: Spontaneous
  Country: US (occurrence: US)
  Receive Date: 20131101
  Receipt Date: 20131101
  Transmission Date: 20140711
  Serious: Yes (Other)
  Sender: FDA-Public Use
  Company Number: US-ALLERGAN-1317078US

PATIENT
  Age: 64 Year
  Sex: Male

DRUGS (3)
  1. PREDNISOLONE ACETATE, 1.0% [Suspect]
     Indication: IRIDOCYCLITIS
     Route: 047
  2. HOMATROPINE [Concomitant]
     Route: 047
  3. TRIAMCINOLONE ACETONIDE [Concomitant]
     Route: 031

REACTIONS (3)
  - Mycotic endophthalmitis [Recovered/Resolved]
  - Uveitis [Unknown]
  - Hypopyon [Unknown]
